FAERS Safety Report 16357513 (Version 1)
Quarter: 2019Q2

REPORT INFORMATION
  Report Type: Report from Study
  Country: None (occurrence: FR)
  Receive Date: 20190527
  Receipt Date: 20190527
  Transmission Date: 20190711
  Serious: Yes (Other)
  Sender: FDA-Public Use
  Company Number: FR-ABBVIE-19S-056-2798365-00

PATIENT
  Age: 75 Year
  Sex: Male

DRUGS (1)
  1. DUODOPA [Suspect]
     Active Substance: CARBIDOPA\LEVODOPA
     Indication: PRODUCT USED FOR UNKNOWN INDICATION
     Dosage: MD : 7 ML ED : 3 ML  FLOW RATE DURING THE DAY: 2.5 ML/H FROM 07:00 AM TO 09:00 PM
     Route: 050
     Dates: start: 20171120

REACTIONS (1)
  - Cataract [Unknown]
